FAERS Safety Report 10098077 (Version 2)
Quarter: 2014Q2

REPORT INFORMATION
  Report Type: Spontaneous
  Country: GB (occurrence: None)
  Receive Date: 20140421
  Receipt Date: 20140424
  Transmission Date: 20141212
  Serious: Yes (Hospitalization, Other)
  Sender: FDA-Public Use
  Company Number: AUR-APL-2014-04594

PATIENT
  Age: 63 Year
  Sex: Male
  Weight: 95.4 kg

DRUGS (13)
  1. RAMIPRIL (RAMIPRIL) [Suspect]
     Indication: HYPERTENSION
     Dosage: (15 MG), ORAL
     Route: 048
     Dates: start: 20140327, end: 20140328
  2. ACIDEX (OMEPRAZOLE) [Concomitant]
  3. ASPIRIN (ACETYLSALICYLIC ACID) [Concomitant]
  4. CEFUROXIME (CEFUROXIME) [Concomitant]
  5. CLOPIDOGREL (CLOPIDOGREL) [Concomitant]
  6. DALTEPARIN (DALTEPARIN) [Concomitant]
  7. GENTAMICIN (GENTAMICIN) [Concomitant]
  8. LANSOPRAZOLE (LANSOPRAZOLE) [Concomitant]
  9. METOCLOPRAMIDE (METOCLOPRAMIDE) [Concomitant]
  10. MORPHINE (MORPHINE) [Concomitant]
  11. ONDANSETRON (ONDANSETRON) [Concomitant]
  12. PARACETAMOL (PARACETAMOL) [Concomitant]
  13. PREGABALIN (PREGABALIN) [Concomitant]

REACTIONS (5)
  - Oesophagitis haemorrhagic [None]
  - Renal failure acute [None]
  - Prescribed overdose [None]
  - Post procedural complication [None]
  - Medication error [None]
